FAERS Safety Report 14412664 (Version 1)
Quarter: 2018Q1

REPORT INFORMATION
  Report Type: Spontaneous
  Country: US (occurrence: US)
  Receive Date: 20180119
  Receipt Date: 20180119
  Transmission Date: 20180509
  Serious: Yes (Hospitalization)
  Sender: FDA-Public Use
  Company Number: None

PATIENT
  Age: 74 Year
  Sex: Male
  Weight: 111 kg

DRUGS (10)
  1. ASPIRIN. [Concomitant]
     Active Substance: ASPIRIN
  2. NEURONTIN [Concomitant]
     Active Substance: GABAPENTIN
  3. HYDRODIURIL [Concomitant]
     Active Substance: HYDROCHLOROTHIAZIDE
  4. NOVOLOG [Suspect]
     Active Substance: INSULIN ASPART
     Indication: DIABETES MELLITUS
     Dosage: DATES OF USE - CHRONIC?DOSE - 10 UNITS
     Route: 058
  5. LASIX [Concomitant]
     Active Substance: FUROSEMIDE
  6. FLOMAX [Concomitant]
     Active Substance: TAMSULOSIN HYDROCHLORIDE
  7. LANTUS [Suspect]
     Active Substance: INSULIN GLARGINE
     Indication: DIABETES MELLITUS
     Dosage: DATES OF USE - CHRONIC?DOSE - 45 UNITS?FREQUENCY - NIGHTLY
     Route: 058
  8. LIPITOR [Concomitant]
     Active Substance: ATORVASTATIN CALCIUM
  9. MONODOX [Concomitant]
     Active Substance: DOXYCYCLINE
  10. ZESTRIL [Concomitant]
     Active Substance: LISINOPRIL

REACTIONS (4)
  - Incorrect dose administered [None]
  - Hypoglycaemia [None]
  - Hypophagia [None]
  - Acute kidney injury [None]

NARRATIVE: CASE EVENT DATE: 20170923
